FAERS Safety Report 9709053 (Version 1)
Quarter: 2013Q4

REPORT INFORMATION
  Report Type: Spontaneous
  Country: DK (occurrence: DK)
  Receive Date: 20131125
  Receipt Date: 20131125
  Transmission Date: 20140711
  Serious: Yes (Other)
  Sender: FDA-Public Use
  Company Number: DK-WATSON-2013-21496

PATIENT
  Age: 63 Year
  Sex: Male
  Weight: 98 kg

DRUGS (2)
  1. AMLODIPIN ACTAVIS [Suspect]
     Indication: HYPERTENSION
     Dosage: 10 MG, UNKNOWN; (DOSIS: 1, STYRKE: 10 MG.)
     Route: 065
     Dates: start: 20110227
  2. CORODIL /00574902/ [Suspect]
     Indication: HYPERTENSION
     Dosage: 10 MG, UNKNOWN; (DOSIS: 1, STYRKE: 10 MG.)
     Route: 065
     Dates: start: 20130206, end: 20130506

REACTIONS (5)
  - Pharyngeal oedema [Recovered/Resolved]
  - Oedema mouth [Recovered/Resolved]
  - Swelling [Recovered/Resolved]
  - Urinary incontinence [Recovered/Resolved]
  - Back pain [Recovered/Resolved]
